FAERS Safety Report 8358533-1 (Version None)
Quarter: 2012Q2

REPORT INFORMATION
  Report Type: 
  Country: None (occurrence: None)
  Receive Date: 20120514
  Receipt Date: 20120511
  Transmission Date: 20120825
  Serious: No
  Sender: FDA-Public Use
  Company Number: US-PFIZER INC-2010041141

PATIENT
  Sex: Female

DRUGS (4)
  1. LIPITOR [Suspect]
     Dosage: UNK
     Route: 048
  2. CALTRATE 600 + VITAMIN D [Interacting]
     Dosage: UNK
     Route: 048
  3. NEXIUM [Interacting]
     Dosage: UNK
     Route: 048
  4. MULTI-VITAMINS [Interacting]
     Dosage: UNK
     Route: 048

REACTIONS (2)
  - VITAMIN D DECREASED [None]
  - DRUG INTERACTION [None]
